FAERS Safety Report 10208463 (Version 1)
Quarter: 2014Q2

REPORT INFORMATION
  Report Type: Spontaneous
  Country: US (occurrence: US)
  Receive Date: 20140530
  Receipt Date: 20140530
  Transmission Date: 20141212
  Serious: Yes (Hospitalization, Disabling)
  Sender: FDA-Public Use
  Company Number: US-GLAXOSMITHKLINE-A1074972A

PATIENT
  Age: 54 Year
  Sex: Male
  Weight: 116.9 kg

DRUGS (28)
  1. ADVAIR HFA [Suspect]
     Indication: PRODUCT USED FOR UNKNOWN INDICATION
     Route: 065
     Dates: start: 20111027
  2. VENTOLIN HFA [Suspect]
     Indication: PRODUCT USED FOR UNKNOWN INDICATION
     Dosage: 2PUFF AS REQUIRED
     Route: 055
     Dates: start: 20111027
  3. VERAMYST [Suspect]
     Indication: PRODUCT USED FOR UNKNOWN INDICATION
     Dosage: 4SPR PER DAY
     Route: 045
  4. PREDNISONE [Suspect]
     Indication: PRODUCT USED FOR UNKNOWN INDICATION
     Dosage: 10MG IN THE MORNING
     Route: 048
  5. THEOPHYLLINE [Suspect]
     Indication: PRODUCT USED FOR UNKNOWN INDICATION
     Dosage: 300MG TWICE PER DAY
     Route: 048
  6. POTASSIUM CHLORIDE [Suspect]
     Indication: PRODUCT USED FOR UNKNOWN INDICATION
     Dosage: 20MEQ TWICE PER DAY
     Route: 048
  7. SINGULAIR [Suspect]
     Indication: PRODUCT USED FOR UNKNOWN INDICATION
     Dosage: 10MG PER DAY
     Route: 048
  8. HYDROCHLOROTHIAZIDE [Suspect]
     Indication: PRODUCT USED FOR UNKNOWN INDICATION
     Dosage: 25MG PER DAY
     Route: 048
  9. POLLEN [Suspect]
     Indication: ILL-DEFINED DISORDER
     Route: 065
  10. IMMUNOTHERAPY [Concomitant]
  11. CELEBREX [Concomitant]
  12. EFFEXOR XR [Concomitant]
  13. VIAGRA [Concomitant]
  14. COMBIVENT RESPIMAT [Concomitant]
  15. DALIRESP [Concomitant]
  16. LASIX [Concomitant]
  17. SPIRIVA HANDIHALER [Concomitant]
  18. EPIPEN [Concomitant]
  19. XOLAIR [Concomitant]
  20. REMERON [Concomitant]
  21. CITRICAL+D [Concomitant]
  22. PULMICORT RESPULES [Concomitant]
  23. ALBUTEROL + IPRATROPIUM BROMIDE [Concomitant]
     Indication: PRODUCT USED FOR UNKNOWN INDICATION
     Dosage: 1VIAL AS REQUIRED
     Route: 055
  24. VERAPAMIL HCL [Concomitant]
  25. BENZONATATE [Concomitant]
  26. MUCOMYST [Concomitant]
  27. FLEXERIL [Concomitant]
  28. PERFOROMIST [Concomitant]

REACTIONS (28)
  - Respiratory tract infection [Unknown]
  - Oxygen supplementation [Not Recovered/Not Resolved]
  - Disability [Unknown]
  - Dyspnoea [Unknown]
  - Cough [Unknown]
  - Wheezing [Unknown]
  - Peripheral swelling [Unknown]
  - Joint swelling [Unknown]
  - Multiple allergies [Unknown]
  - Respiratory disorder [Unknown]
  - Rhinitis perennial [Unknown]
  - Asthma [Unknown]
  - Lacrimation increased [Unknown]
  - Dysphonia [Unknown]
  - Upper-airway cough syndrome [Unknown]
  - Throat irritation [Unknown]
  - Productive cough [Unknown]
  - Sputum discoloured [Unknown]
  - Increased viscosity of bronchial secretion [Unknown]
  - Fatigue [Unknown]
  - Dyspnoea exertional [Unknown]
  - Back pain [Unknown]
  - Heart rate irregular [Unknown]
  - Sleep disorder [Unknown]
  - Somnolence [Unknown]
  - Insomnia [Unknown]
  - Restless legs syndrome [Unknown]
  - Drug administration error [Unknown]
